FAERS Safety Report 8958510 (Version 1)
Quarter: 2012Q4

REPORT INFORMATION
  Report Type: Spontaneous
  Country: US (occurrence: None)
  Receive Date: 20121205
  Receipt Date: 20121205
  Transmission Date: 20130627
  Serious: Yes (Other)
  Sender: FDA-Public Use
  Company Number: None

PATIENT
  Age: 68 Year
  Sex: Male
  Weight: 84.5 kg

DRUGS (1)
  1. DAPTOMYCIN [Suspect]
     Indication: ABSCESS
     Dosage: 500 mg  Q24H  IV (042)
     Route: 042
     Dates: start: 20121011, end: 20121030

REACTIONS (2)
  - Hypersensitivity [None]
  - Pneumonitis [None]
